FAERS Safety Report 10055565 (Version 6)
Quarter: 2014Q4

REPORT INFORMATION
  Report Type: Report from Study
  Country: AR (occurrence: AR)
  Receive Date: 20140403
  Receipt Date: 20141205
  Transmission Date: 20150528
  Serious: Yes (Life-Threatening, Hospitalization, Other)
  Sender: FDA-Public Use
  Company Number: AR-ROCHE-1376306

PATIENT
  Age: 52 Year
  Sex: Male

DRUGS (2)
  1. XOLAIR [Suspect]
     Active Substance: OMALIZUMAB
     Route: 058
  2. XOLAIR [Suspect]
     Active Substance: OMALIZUMAB
     Indication: ASTHMA
     Route: 058
     Dates: start: 201306

REACTIONS (15)
  - Infection reactivation [Not Recovered/Not Resolved]
  - Hypersensitivity [Unknown]
  - Increased bronchial secretion [Unknown]
  - Bronchitis bacterial [Recovering/Resolving]
  - Bacterial infection [Not Recovered/Not Resolved]
  - Respiratory tract congestion [Unknown]
  - Feeling abnormal [Unknown]
  - Pneumonia [Recovering/Resolving]
  - Infection [Unknown]
  - Chronic obstructive pulmonary disease [Unknown]
  - Drug ineffective [Unknown]
  - Total lung capacity decreased [Not Recovered/Not Resolved]
  - Asthma [Unknown]
  - General physical health deterioration [Unknown]
  - Swelling [Unknown]

NARRATIVE: CASE EVENT DATE: 201310
